FAERS Safety Report 7912215-6 (Version None)
Quarter: 2011Q4

REPORT INFORMATION
  Report Type: 
  Country: None (occurrence: None)
  Receive Date: 20111114
  Receipt Date: 20111103
  Transmission Date: 20120403
  Serious: Yes (Other)
  Sender: FDA-Public Use
  Company Number: US-JNJFOC-20111101592

PATIENT
  Sex: Female
  Weight: 90.72 kg

DRUGS (3)
  1. REMICADE [Suspect]
     Indication: CROHN'S DISEASE
     Route: 042
     Dates: start: 20111021, end: 20111029
  2. REMICADE [Suspect]
     Route: 042
     Dates: start: 20010101
  3. PREDNISONE [Concomitant]
     Indication: INFLAMMATION
     Route: 048
     Dates: start: 20110901

REACTIONS (4)
  - ABASIA [None]
  - MYALGIA [None]
  - PAIN [None]
  - ARTHRALGIA [None]
